FAERS Safety Report 7474910-5 (Version None)
Quarter: 2011Q2

REPORT INFORMATION
  Report Type: 
  Country: None (occurrence: None)
  Receive Date: 20110512
  Receipt Date: 20081001
  Transmission Date: 20111010
  Serious: Yes (Other)
  Sender: FDA-Public Use
  Company Number: US-BAYER-2011-009672

PATIENT
  Age: 69 Year
  Sex: Male
  Weight: 81.633 kg

DRUGS (9)
  1. TRASYLOL [Suspect]
     Indication: SURGERY
     Dosage: UNK
     Dates: start: 19960501
  2. LEVSIN [Concomitant]
     Dosage: 0.125MG AS NEEDED
     Route: 048
  3. HEPARIN [Concomitant]
     Dosage: UNK
     Route: 042
     Dates: start: 19960516, end: 19960516
  4. BENADRYL [Concomitant]
     Dosage: 50 MG, UNK
     Route: 042
     Dates: start: 19960516, end: 19960516
  5. AMIDATE [Concomitant]
     Dosage: UNK
     Route: 042
     Dates: start: 19960516, end: 19960516
  6. CORDARONE [Concomitant]
  7. NITROGLYCERIN [Concomitant]
     Dosage: UNK
     Route: 042
     Dates: start: 19960516, end: 19960516
  8. AMICAR [Concomitant]
     Dosage: 10GM/250CC AT 25CC/HOUR
     Route: 042
     Dates: start: 19960516, end: 19960516
  9. CAPOTEN [Concomitant]

REACTIONS (7)
  - CARDIAC DISORDER [None]
  - MYOCARDIAL INFARCTION [None]
  - PAIN [None]
  - INJURY [None]
  - ANXIETY [None]
  - EMOTIONAL DISTRESS [None]
  - STRESS [None]
